FAERS Safety Report 8965465 (Version 1)
Quarter: 2012Q4

REPORT INFORMATION
  Report Type: 
  Country: US (occurrence: US)
  Receive Date: 20121213
  Receipt Date: 20121213
  Transmission Date: 20130627
  Serious: Yes (Hospitalization)
  Sender: FDA-Public Use
  Company Number: US-BAYER-2012-127005

PATIENT
  Age: 63 Year
  Sex: Male

DRUGS (1)
  1. STIVARGA [Suspect]
     Dosage: 4x40mg daily for 21 days then 7 days off
     Route: 048
     Dates: start: 20121101

REACTIONS (3)
  - Dyspnoea [None]
  - Pain [None]
  - Blister [None]
